FAERS Safety Report 10213569 (Version 1)
Quarter: 2014Q2

REPORT INFORMATION
  Report Type: Spontaneous
  Country: US (occurrence: None)
  Receive Date: 20140530
  Receipt Date: 20140530
  Transmission Date: 20141212
  Serious: Yes (Other)
  Sender: FDA-Public Use
  Company Number: TIR-03535

PATIENT
  Age: 54 Year
  Sex: Female
  Weight: 61.24 kg

DRUGS (3)
  1. TIROSINT [Suspect]
     Indication: HYPOTHYROIDISM
     Dosage: 1 CAPSULE  DAILY WITH WATER, ORAL
     Route: 048
     Dates: start: 201311
  2. CYTOMEL [Concomitant]
  3. MULTIVITAMIN [Concomitant]
     Route: 048

REACTIONS (3)
  - Splenomegaly [None]
  - Blood thyroid stimulating hormone decreased [None]
  - Abdominal pain [None]
